FAERS Safety Report 19206433 (Version 2)
Quarter: 2025Q2

REPORT INFORMATION
  Report Type: Spontaneous
  Country: PT (occurrence: PT)
  Receive Date: 20210503
  Receipt Date: 20250626
  Transmission Date: 20250716
  Serious: Yes (Other)
  Sender: AUROBINDO
  Company Number: PT-GLAXOSMITHKLINE-PT2021GSK080900

PATIENT
  Age: 50 Year
  Sex: Female

DRUGS (8)
  1. ACYCLOVIR [Suspect]
     Active Substance: ACYCLOVIR
     Indication: Herpes simplex encephalitis
     Dosage: 30 MILLIGRAM/KILOGRAM, ONCE A DAY
     Route: 042
  2. LEVETIRACETAM [Suspect]
     Active Substance: LEVETIRACETAM
     Indication: Partial seizures
     Dosage: 3 GRAM, ONCE A DAY
     Route: 065
  3. TOPIRAMATE [Suspect]
     Active Substance: TOPIRAMATE
     Indication: Partial seizures
     Dosage: 300 MILLIGRAM, ONCE A DAY
     Route: 065
  4. VALPROIC ACID [Suspect]
     Active Substance: VALPROIC ACID
     Indication: Partial seizures
     Dosage: 3 GRAM, ONCE A DAY
     Route: 065
  5. FOSCARNET [Concomitant]
     Active Substance: FOSCARNET
     Indication: Partial seizures
     Route: 065
  6. METHYLPREDNISOLONE [Concomitant]
     Active Substance: METHYLPREDNISOLONE
     Indication: Partial seizures
     Route: 065
  7. Immunoglobulin [Concomitant]
     Indication: Partial seizures
     Route: 065
  8. PREDNISOLONE [Concomitant]
     Active Substance: PREDNISOLONE
     Indication: Partial seizures
     Route: 048

REACTIONS (3)
  - Pathogen resistance [Unknown]
  - Drug resistance [Unknown]
  - Drug ineffective [Unknown]
